FAERS Safety Report 5271025-1 (Version None)
Quarter: 2007Q1

REPORT INFORMATION
  Report Type: 
  Country: None (occurrence: None)
  Receive Date: 20061214
  Receipt Date: 20060523
  Transmission Date: 20070707
  Serious: Yes (Other)
  Sender: FDA-Public Use
  Company Number: 2005137183

PATIENT
  Age: 46 Year
  Sex: Female

DRUGS (8)
  1. BEXTRA [Suspect]
     Indication: ILL-DEFINED DISORDER
     Dates: start: 20020901, end: 20020101
  2. WELLBUTRIN [Concomitant]
  3. FOLIC ACID (FOLIC - UNKNOWN - ACID) [Concomitant]
  4. NORVASC [Concomitant]
  5. LIPITOR [Concomitant]
  6. ASPIRIN [Concomitant]
  7. CYCLOENZAPRINE (CYCLOBENZAPRINE) [Concomitant]
  8. FLEXERIL [Concomitant]

REACTIONS (1)
  - MYOCARDIAL INFARCTION [None]
